FAERS Safety Report 5636711-X (Version None)
Quarter: 2008Q1

REPORT INFORMATION
  Report Type: 
  Country: None (occurrence: None)
  Receive Date: 20080225
  Receipt Date: 20080219
  Transmission Date: 20080703
  Serious: Yes (Other)
  Sender: FDA-Public Use
  Company Number: US-ASTRAZENECA-2008UW03369

PATIENT
  Age: 46 Year
  Sex: Female

DRUGS (3)
  1. ARIMIDEX [Suspect]
     Route: 048
     Dates: start: 20070701
  2. SYNTHROID [Concomitant]
  3. VITAMINS [Concomitant]

REACTIONS (1)
  - OPTIC NEURITIS [None]
